FAERS Safety Report 10451274 (Version 3)
Quarter: 2014Q4

REPORT INFORMATION
  Report Type: Spontaneous
  Country: US (occurrence: US)
  Receive Date: 20140912
  Receipt Date: 20141029
  Transmission Date: 20150528
  Serious: Yes (Hospitalization, Other)
  Sender: FDA-Public Use
  Company Number: US-PFIZER INC-2014233981

PATIENT
  Age: 64 Year
  Sex: Male
  Weight: 90.25 kg

DRUGS (9)
  1. FLOMAX [Concomitant]
     Active Substance: TAMSULOSIN HYDROCHLORIDE
     Dosage: 0.4 MG, UNK
  2. FIBERCON [Suspect]
     Active Substance: CALCIUM POLYCARBOPHIL
     Indication: ABDOMINAL PAIN LOWER
  3. VSL#3 DS [Concomitant]
     Indication: ABDOMINAL PAIN LOWER
     Dosage: 1 DF (900 BILLION CELL PWPK), DAILY
     Route: 048
  4. PLAVIX [Concomitant]
     Active Substance: CLOPIDOGREL BISULFATE
     Dosage: UNK
     Route: 048
  5. VSL#3 DS [Concomitant]
     Indication: DIARRHOEA
  6. LOMOTIL [Concomitant]
     Active Substance: ATROPINE SULFATE\DIPHENOXYLATE HYDROCHLORIDE
     Indication: DIARRHOEA
     Dosage: ATROPINE SULFATE- 0.025/ DIPHENOXYLATE HYDROCHLORIDE- 2.5 MG, 1-2 TABS 2 TIMES DAILY AS NEEDED
     Route: 048
  7. ZITHROMAX [Concomitant]
     Active Substance: AZITHROMYCIN DIHYDRATE
     Dosage: 250 MG, UNK
  8. FIBERCON [Suspect]
     Active Substance: CALCIUM POLYCARBOPHIL
     Indication: DIARRHOEA
     Dosage: 2 DF, 2X/DAY
     Route: 048
     Dates: start: 20140710, end: 20140711
  9. SULFADIAZINE. [Concomitant]
     Active Substance: SULFADIAZINE
     Dosage: 500 MG, UNK

REACTIONS (2)
  - Abdominal pain [Unknown]
  - Colitis ulcerative [Unknown]

NARRATIVE: CASE EVENT DATE: 201407
